FAERS Safety Report 16489564 (Version 1)
Quarter: 2019Q2

REPORT INFORMATION
  Report Type: Spontaneous
  Country: US (occurrence: US)
  Receive Date: 20190628
  Receipt Date: 20190628
  Transmission Date: 20190711
  Serious: No
  Sender: FDA-Public Use
  Company Number: US-PFIZER INC-2019276789

PATIENT
  Age: 79 Year
  Sex: Female
  Weight: 79.37 kg

DRUGS (2)
  1. GLUCOTROL [Suspect]
     Active Substance: GLIPIZIDE
     Indication: DIABETES MELLITUS
     Dosage: 0.25 MG, UNK
  2. GLUCOTROL [Suspect]
     Active Substance: GLIPIZIDE
     Dosage: 0.5 MG, 1X/DAY

REACTIONS (5)
  - Off label use [Unknown]
  - Malaise [Unknown]
  - Asthenia [Unknown]
  - Dizziness [Unknown]
  - Product use issue [Unknown]
